FAERS Safety Report 14490001 (Version 1)
Quarter: 2018Q1

REPORT INFORMATION
  Report Type: Spontaneous
  Country: US (occurrence: US)
  Receive Date: 20180206
  Receipt Date: 20180206
  Transmission Date: 20180509
  Serious: Yes (Other)
  Sender: FDA-Public Use
  Company Number: US-ROCHE-2062805

PATIENT
  Age: 79 Year
  Sex: Female

DRUGS (7)
  1. CARDIZEM [Concomitant]
     Active Substance: DILTIAZEM HYDROCHLORIDE
     Indication: BLOOD PRESSURE MEASUREMENT
     Dosage: ONGOING: UNKNOWN
     Route: 065
  2. VALIUM [Suspect]
     Active Substance: DIAZEPAM
     Indication: BLOOD PRESSURE MEASUREMENT
     Dosage: ONGOING: NO
     Route: 048
  3. VALIUM [Suspect]
     Active Substance: DIAZEPAM
     Dosage: ONGOING: NO
     Route: 048
  4. VALIUM [Suspect]
     Active Substance: DIAZEPAM
     Indication: ANXIETY
     Dosage: 4-5 TIMES PER DAY AS NEEDED ;ONGOING: YES
     Route: 048
  5. THYROID [Concomitant]
     Active Substance: LEVOTHYROXINE\LIOTHYRONINE
     Indication: HYPOTHYROIDISM
     Dosage: ONGOING: UNKNOWN
     Route: 065
  6. LEVAQUIN [Suspect]
     Active Substance: LEVOFLOXACIN
     Indication: PRODUCT USED FOR UNKNOWN INDICATION
     Dosage: ONGOING: UNKNOWN
     Route: 065
  7. INHALER NOS [Concomitant]
     Active Substance: UNSPECIFIED INGREDIENT
     Dosage: ONGOING: UNKNOWN
     Route: 065

REACTIONS (11)
  - Malaise [Unknown]
  - Hypothyroidism [Unknown]
  - Hypertension [Unknown]
  - Viral infection [Not Recovered/Not Resolved]
  - Somnolence [Unknown]
  - Depression [Unknown]
  - Emotional distress [Unknown]
  - Frustration tolerance decreased [Unknown]
  - Feeling abnormal [Unknown]
  - Sneezing [Unknown]
  - Insomnia [Unknown]

NARRATIVE: CASE EVENT DATE: 201712
